FAERS Safety Report 9213424 (Version 2)
Quarter: 2013Q2

REPORT INFORMATION
  Report Type: Spontaneous
  Country: JP (occurrence: JP)
  Receive Date: 20130405
  Receipt Date: 20130415
  Transmission Date: 20140414
  Serious: Yes (Hospitalization)
  Sender: FDA-Public Use
  Company Number: PHHY2013JP026846

PATIENT
  Sex: Female

DRUGS (2)
  1. RIVASTIGMIN [Suspect]
     Indication: DEMENTIA ALZHEIMER^S TYPE
     Dosage: 4.5 MG, (ONCE A DAY)
     Route: 062
  2. RIVASTIGMIN [Suspect]
     Dosage: 18 MG, (ONCE A DAY)
     Route: 062
     Dates: end: 20130312

REACTIONS (3)
  - Dehydration [Not Recovered/Not Resolved]
  - Decreased appetite [Not Recovered/Not Resolved]
  - Somnolence [Recovered/Resolved]
